FAERS Safety Report 24020228 (Version 1)
Quarter: 2024Q2

REPORT INFORMATION
  Report Type: Report from Study
  Country: CA (occurrence: None)
  Receive Date: 20240627
  Receipt Date: 20240627
  Transmission Date: 20240716
  Serious: Yes (Other)
  Sender: FDA-Public Use
  Company Number: 2024A138460

PATIENT
  Sex: Female

DRUGS (6)
  1. TEZSPIRE [Suspect]
     Active Substance: TEZEPELUMAB-EKKO
     Indication: Asthma
     Route: 058
     Dates: start: 20231214
  2. TEZSPIRE [Suspect]
     Active Substance: TEZEPELUMAB-EKKO
     Indication: Asthma
     Route: 058
     Dates: start: 20240516
  3. BRICANYL [Concomitant]
     Active Substance: TERBUTALINE SULFATE
     Dosage: 0.5MCG,
  4. PREDNISONE [Concomitant]
     Active Substance: PREDNISONE
     Dosage: 10MG DAILY,
  5. SPIRIVA [Concomitant]
     Active Substance: TIOTROPIUM BROMIDE MONOHYDRATE
     Dosage: 2.5MCG 3 PUFFS DAILY,
  6. SYMBICORT [Concomitant]
     Active Substance: BUDESONIDE\FORMOTEROL FUMARATE DIHYDRATE
     Dosage: 200MCG 2 PUFFS 3XDAILY,

REACTIONS (2)
  - Herpes zoster [Recovering/Resolving]
  - Product distribution issue [Unknown]
